FAERS Safety Report 8769310 (Version 2)
Quarter: 2012Q4

REPORT INFORMATION
  Report Type: 
  Country: US (occurrence: US)
  Receive Date: 20120905
  Receipt Date: 20121001
  Transmission Date: 20130627
  Serious: No
  Sender: FDA-Public Use
  Company Number: US-PFIZER INC-2012216550

PATIENT
  Age: 49 Year

DRUGS (1)
  1. PREGABALIN [Suspect]
     Dosage: UNK

REACTIONS (1)
  - Oedema [Unknown]
